FAERS Safety Report 13839414 (Version 1)
Quarter: 2017Q3

REPORT INFORMATION
  Report Type: Spontaneous
  Country: US (occurrence: US)
  Receive Date: 20170805
  Receipt Date: 20170805
  Transmission Date: 20171127
  Serious: No
  Sender: FDA-Public Use
  Company Number: None

PATIENT
  Age: 26 Year
  Sex: Female

DRUGS (14)
  1. CEFAZOLIN [Concomitant]
     Active Substance: CEFAZOLIN
  2. DOCUSATE [Concomitant]
     Active Substance: DOCUSATE
  3. ENALAPRIL [Concomitant]
     Active Substance: ENALAPRIL
  4. SPIRONOLACTONE. [Concomitant]
     Active Substance: SPIRONOLACTONE
  5. INSULIN ASPART [Suspect]
     Active Substance: INSULIN ASPART
     Indication: HYPERGLYCAEMIA
     Route: 058
  6. ASCORBIC ACID. [Concomitant]
     Active Substance: ASCORBIC ACID
  7. MAGNESIUM OXIDE. [Concomitant]
     Active Substance: MAGNESIUM OXIDE
  8. MORPHINE [Concomitant]
     Active Substance: MORPHINE
  9. INSULIN GLARGINE [Suspect]
     Active Substance: INSULIN GLARGINE
     Route: 058
  10. CARVEDILOL. [Concomitant]
     Active Substance: CARVEDILOL
  11. FOLIC ACID. [Concomitant]
     Active Substance: FOLIC ACID
  12. OLANZAPINE. [Concomitant]
     Active Substance: OLANZAPINE
  13. CLONAZEPAM. [Concomitant]
     Active Substance: CLONAZEPAM
  14. FERROUS SULFATE. [Concomitant]
     Active Substance: FERROUS SULFATE

REACTIONS (4)
  - Hypoglycaemia [None]
  - Mental status changes [None]
  - Unresponsive to stimuli [None]
  - Sepsis [None]

NARRATIVE: CASE EVENT DATE: 20170503
